FAERS Safety Report 4927161-X (Version None)
Quarter: 2006Q1

REPORT INFORMATION
  Report Type: 
  Country: None (occurrence: None)
  Receive Date: 20060222
  Receipt Date: 20060209
  Transmission Date: 20060701
  Serious: Yes (Hospitalization)
  Sender: FDA-Public Use
  Company Number: 2006-BP-01565RO

PATIENT
  Age: 28 Year
  Sex: Female

DRUGS (2)
  1. AZATHIOPRINE [Suspect]
     Indication: CROHN'S DISEASE
  2. INFLIXIMAB (INFLIXIMAB) [Suspect]
     Indication: CROHN'S DISEASE

REACTIONS (6)
  - ANAEMIA [None]
  - GLYCOGEN STORAGE DISEASE TYPE VIII [None]
  - HEPATIC NEOPLASM MALIGNANT [None]
  - PERIANAL ABSCESS [None]
  - THROMBOCYTHAEMIA [None]
  - URINE LEUKOCYTE ESTERASE POSITIVE [None]
